FAERS Safety Report 13329180 (Version 1)
Quarter: 2017Q1

REPORT INFORMATION
  Report Type: Spontaneous
  Country: US (occurrence: US)
  Receive Date: 20170313
  Receipt Date: 20170313
  Transmission Date: 20170428
  Serious: Yes (Hospitalization)
  Sender: FDA-Public Use
  Company Number: None

PATIENT
  Age: 70 Year
  Sex: Male
  Weight: 152.09 kg

DRUGS (1)
  1. ORBACTIV [Suspect]
     Active Substance: ORITAVANCIN
     Indication: CELLULITIS
     Route: 042
     Dates: start: 20170127

REACTIONS (5)
  - Dyspnoea [None]
  - Pyrexia [None]
  - Nausea [None]
  - Chills [None]
  - Dizziness [None]

NARRATIVE: CASE EVENT DATE: 20170206
